FAERS Safety Report 26164366 (Version 1)
Quarter: 2025Q4

REPORT INFORMATION
  Report Type: Spontaneous
  Country: US (occurrence: US)
  Receive Date: 20251216
  Receipt Date: 20251216
  Transmission Date: 20260118
  Serious: No
  Sender: INCYTE
  Company Number: US-EVENT-005190

PATIENT
  Age: 22 Year
  Weight: 67.574 kg

DRUGS (1)
  1. OPZELURA [Suspect]
     Active Substance: RUXOLITINIB PHOSPHATE
     Indication: Product used for unknown indication
     Dosage: APPLY TO AFFECTED AREA(S) ON THE FACE AND EYELIDS TWICE DAILY FOR UP TO 8 WEEKS, TAKE 1 WEEK BREAK
     Route: 048

REACTIONS (1)
  - Nasopharyngitis [Not Recovered/Not Resolved]
